FAERS Safety Report 8308828-2 (Version None)
Quarter: 2012Q2

REPORT INFORMATION
  Report Type: 
  Country: None (occurrence: None)
  Receive Date: 20120424
  Receipt Date: 20120413
  Transmission Date: 20120825
  Serious: Yes (Hospitalization)
  Sender: FDA-Public Use
  Company Number: US-ACTELION-A-NJ2012-64257

PATIENT

DRUGS (4)
  1. TRACLEER [Suspect]
     Indication: PULMONARY ARTERIAL HYPERTENSION
     Dosage: UNK
     Route: 048
     Dates: start: 20091207
  2. FLOLAN [Concomitant]
  3. ADCIRCA [Concomitant]
  4. DIGOXIN [Concomitant]

REACTIONS (1)
  - DEVICE RELATED INFECTION [None]
